FAERS Safety Report 8228066-1 (Version None)
Quarter: 2012Q1

REPORT INFORMATION
  Report Type: 
  Country: None (occurrence: None)
  Receive Date: 20120322
  Receipt Date: 20120113
  Transmission Date: 20120608
  Serious: No
  Sender: FDA-Public Use
  Company Number: US-BRISTOL-MYERS SQUIBB COMPANY-16335325

PATIENT
  Age: 69 Year
  Sex: Male

DRUGS (1)
  1. ERBITUX [Suspect]

REACTIONS (6)
  - RASH [None]
  - STOMATITIS [None]
  - LIP BLISTER [None]
  - SALIVARY HYPERSECRETION [None]
  - FATIGUE [None]
  - DYSPHAGIA [None]
